FAERS Safety Report 14559513 (Version 1)
Quarter: 2018Q1

REPORT INFORMATION
  Report Type: Spontaneous
  Country: US (occurrence: US)
  Receive Date: 20180221
  Receipt Date: 20180221
  Transmission Date: 20180509
  Serious: Yes (Other)
  Sender: FDA-Public Use
  Company Number: US-RADIUS HEALTH INC.-2018US000233

PATIENT
  Sex: Female
  Weight: 67 kg

DRUGS (2)
  1. TYMLOS [Suspect]
     Active Substance: ABALOPARATIDE
     Indication: OSTEOPOROSIS POSTMENOPAUSAL
     Dosage: 80 MCG, EVERY NIGHT
     Route: 058
     Dates: start: 20180101, end: 20180215
  2. TYMLOS [Suspect]
     Active Substance: ABALOPARATIDE

REACTIONS (4)
  - Sarcoidosis [Unknown]
  - Bone pain [Recovered/Resolved]
  - Nausea [Recovering/Resolving]
  - Fatigue [Recovering/Resolving]

NARRATIVE: CASE EVENT DATE: 201801
